FAERS Safety Report 9546495 (Version 1)
Quarter: 2013Q3

REPORT INFORMATION
  Report Type: Spontaneous
  Country: CA (occurrence: CA)
  Receive Date: 20130923
  Receipt Date: 20130923
  Transmission Date: 20140515
  Serious: Yes (Hospitalization, Disabling, Other)
  Sender: FDA-Public Use
  Company Number: CA-009507513-1309CAN010612

PATIENT
  Age: 63 Year
  Sex: Female
  Weight: 57.14 kg

DRUGS (7)
  1. FOSAMAX [Suspect]
     Indication: PRODUCT USED FOR UNKNOWN INDICATION
     Dosage: 70 MG, QD
     Route: 048
  2. CRESTOR [Concomitant]
     Route: 065
  3. FIORINAL (ACETAMINOPHEN (+) ASPIRIN (+) CAFFEINE) [Concomitant]
     Route: 065
  4. IMITREX (SUMATRIPTAN) [Concomitant]
     Route: 058
  5. INDERAL LA [Concomitant]
     Route: 065
  6. NEXIUM [Concomitant]
     Route: 065
  7. TRUSOPT [Concomitant]
     Route: 047

REACTIONS (3)
  - Arthralgia [Not Recovered/Not Resolved]
  - Femur fracture [Not Recovered/Not Resolved]
  - Gait disturbance [Not Recovered/Not Resolved]
